FAERS Safety Report 25731541 (Version 1)
Quarter: 2025Q3

REPORT INFORMATION
  Report Type: Spontaneous
  Country: US (occurrence: None)
  Receive Date: 20250827
  Receipt Date: 20250827
  Transmission Date: 20251020
  Serious: Yes (Other)
  Sender: FDA-CTU
  Company Number: None

PATIENT
  Age: 74 Year
  Sex: Male
  Weight: 84.6 kg

DRUGS (15)
  1. JANUVIA [Suspect]
     Active Substance: SITAGLIPTIN PHOSPHATE
     Indication: Diabetes mellitus
     Dosage: 90 TABLET (S) DAILY ORAL
     Route: 048
     Dates: start: 20250814, end: 20250816
  2. LIPITOR [Suspect]
     Active Substance: ATORVASTATIN CALCIUM
  3. ASPIRIN [Concomitant]
     Active Substance: ASPIRIN
  4. cholecalciferol (vitamin d) [Concomitant]
  5. colesevelam (welchol) [Concomitant]
  6. cemtri [Concomitant]
  7. FARXIGA [Concomitant]
     Active Substance: DAPAGLIFLOZIN PROPANEDIOL
  8. ferrous sulfate (slow fe) [Concomitant]
  9. glimepiride (amaryl) [Concomitant]
  10. SYNTHROID [Concomitant]
     Active Substance: LEVOTHYROXINE SODIUM
  11. lisinopril (prinvil or zestril) [Concomitant]
  12. metformin (glucophage) [Concomitant]
  13. omega-3 fatty acids (fish oil) [Concomitant]
  14. PRILOSEC [Concomitant]
     Active Substance: OMEPRAZOLE MAGNESIUM
  15. CRESTOR [Concomitant]
     Active Substance: ROSUVASTATIN CALCIUM

REACTIONS (7)
  - Arthralgia [None]
  - Poor quality sleep [None]
  - Feeling abnormal [None]
  - Musculoskeletal chest pain [None]
  - Musculoskeletal chest pain [None]
  - Decreased activity [None]
  - Blood glucose decreased [None]

NARRATIVE: CASE EVENT DATE: 20250815
